FAERS Safety Report 11835436 (Version 1)
Quarter: 2015Q4

REPORT INFORMATION
  Report Type: Spontaneous
  Country: None (occurrence: None)
  Receive Date: 20151214
  Receipt Date: 20151214
  Transmission Date: 20160305
  Serious: No
  Sender: FDA-Public Use
  Company Number: None

PATIENT
  Age: 44 Year
  Sex: Male
  Weight: 79.38 kg

DRUGS (1)
  1. CIPROFLOXACIN HCL [Suspect]
     Active Substance: CIPROFLOXACIN HYDROCHLORIDE
     Indication: URINARY TRACT INFECTION
     Route: 048
     Dates: start: 20151210, end: 20151211

REACTIONS (5)
  - Myalgia [None]
  - Visual impairment [None]
  - Photophobia [None]
  - Arthralgia [None]
  - Mental status changes [None]

NARRATIVE: CASE EVENT DATE: 20151212
